FAERS Safety Report 6357856-5 (Version None)
Quarter: 2009Q3

REPORT INFORMATION
  Report Type: 
  Country: None (occurrence: None)
  Receive Date: 20090916
  Receipt Date: 20090909
  Transmission Date: 20100115
  Serious: Yes (Hospitalization)
  Sender: FDA-Public Use
  Company Number: US-ROCHE-653395

PATIENT
  Age: 60 Year
  Sex: Male

DRUGS (11)
  1. CLONAZEPAM [Suspect]
     Indication: DEPRESSION
     Dosage: OTHER INDICATION: POSTTRAUMATIC STRESS DISORDER
     Route: 048
  2. CLONAZEPAM [Suspect]
     Route: 048
  3. CLONAZEPAM [Suspect]
     Route: 048
  4. QUETIAPINE [Suspect]
     Indication: DEPRESSION
     Dosage: EVERY NIGHT; OTHER INDICATION: POSTTRAUMATIC STRESS DISORDER
     Route: 065
  5. QUETIAPINE [Suspect]
     Dosage: EVERY NIGHT
     Route: 065
  6. FLUOXETINE [Suspect]
     Indication: DEPRESSION
     Dosage: EVERY MORNING; OTHER INDICATION: POSTTRAUMATIC STRESS DISORDER
     Route: 065
  7. PRAZSOIN HCL [Suspect]
     Indication: DEPRESSION
     Dosage: EVERY NIGHT; OTHER INDICATION: POSTTRAUMATIC STRESS DISORDER
     Route: 065
  8. PRAZSOIN HCL [Suspect]
     Dosage: 2 MG EVERY MORNING AND 6 MG EVERY NIGHT.
     Route: 065
  9. LORAZEPAM [Suspect]
     Indication: ALCOHOL WITHDRAWAL SYNDROME
     Dosage: ROUTE: INTRAVENOUS
     Route: 050
  10. LORAZEPAM [Suspect]
     Dosage: ROUTE: INTRAMUSCULAR
     Route: 050
  11. THIAMINE HCL [Concomitant]

REACTIONS (8)
  - BLOOD CREATINE PHOSPHOKINASE INCREASED [None]
  - DRUG INEFFECTIVE [None]
  - DRUG WITHDRAWAL SYNDROME [None]
  - HYPERTENSION [None]
  - HYPONATRAEMIA [None]
  - POST-TRAUMATIC STRESS DISORDER [None]
  - TACHYCARDIA [None]
  - TACHYPNOEA [None]
